FAERS Safety Report 25863768 (Version 2)
Quarter: 2025Q4

REPORT INFORMATION
  Report Type: Spontaneous
  Country: US (occurrence: US)
  Receive Date: 20250930
  Receipt Date: 20251111
  Transmission Date: 20260117
  Serious: No
  Sender: DR REDDYS
  Company Number: US-DRL-USA-USA/2025/09/014513

PATIENT
  Age: 27 Year
  Sex: Female
  Weight: 45.36 kg

DRUGS (3)
  1. ACCUTANE [Suspect]
     Active Substance: ISOTRETINOIN
     Indication: Acne
     Dosage: ACCUTANE (ISOTRETINOIN) CAPSULES 20 MG
     Route: 048
     Dates: end: 20210401
  2. Winlevi cream [Concomitant]
     Indication: Acne
     Route: 065
  3. TAZORAC [Concomitant]
     Active Substance: TAZAROTENE
     Indication: Acne
     Route: 065

REACTIONS (1)
  - Drug ineffective [Unknown]
